FAERS Safety Report 7544313-3 (Version None)
Quarter: 2011Q2

REPORT INFORMATION
  Report Type: 
  Country: None (occurrence: None)
  Receive Date: 20110613
  Receipt Date: 20080115
  Transmission Date: 20111010
  Serious: Yes (Hospitalization)
  Sender: FDA-Public Use
  Company Number: PHHY2008US00790

PATIENT
  Sex: Male
  Weight: 85.4 kg

DRUGS (20)
  1. NEURONTIN [Concomitant]
     Indication: NEUROPATHY PERIPHERAL
     Dosage: 300 MG, BID
     Dates: start: 20071105
  2. MYCELEX [Concomitant]
     Dosage: 1 UNK, QID
     Dates: start: 20071105
  3. SEPTRA [Concomitant]
     Dosage: 1 UNK, QID
     Dates: start: 20071105
  4. VALCYTE [Concomitant]
     Dosage: 450 MG, QD
     Dates: start: 20071105
  5. PREDNISONE [Concomitant]
     Indication: IMMUNOSUPPRESSION
     Dosage: 10 MG, QD
     Dates: start: 20071105
  6. LISINOPRIL [Concomitant]
     Indication: HYPERTENSION
     Dosage: 10 MG, QD
     Dates: start: 20071126, end: 20071211
  7. PAXIL [Concomitant]
     Indication: DEPRESSION
     Dosage: 30 MG, QD
     Dates: start: 20071105
  8. PREDNISONE [Concomitant]
     Dosage: 7.5 MG, QD
     Dates: start: 20071210
  9. ATENOLOL [Concomitant]
     Indication: HYPERTENSION
     Dosage: 100 MG, UNK
     Dates: start: 20071105
  10. GEMFIBROZIL [Concomitant]
     Indication: HYPERTRIGLYCERIDAEMIA
     Dosage: 600 MG, BID
     Dates: start: 20071105
  11. CALCIUM CARBONATE [Concomitant]
     Indication: OSTEOPENIA
     Dosage: 100 MG, UNK
     Dates: start: 20071105
  12. ACTONEL [Concomitant]
     Indication: OSTEOPENIA
     Dosage: 35 MG, QW
     Dates: start: 20071105
  13. PROGRAF [Concomitant]
     Dosage: 2 MG, BID
     Dates: start: 20071212
  14. NIFEDIPINE [Concomitant]
     Indication: HYPERTENSION
     Dosage: 60 MG, BID
     Dates: start: 20071105
  15. CALCITRIOL [Concomitant]
     Indication: OSTEOPENIA
     Dosage: 0.25 UG, QD
     Dates: start: 20071105
  16. MYFORTIC [Suspect]
     Indication: RENAL TRANSPLANT
     Dosage: 1080 MG, UNK
     Route: 048
     Dates: start: 20071104
  17. PROGRAF [Concomitant]
     Indication: IMMUNOSUPPRESSION
     Dosage: 3 MG, BID
     Dates: start: 20071105
  18. IRON PREPARATIONS [Concomitant]
     Dosage: UNK, QD
     Dates: start: 20071105
  19. PROTONIX [Concomitant]
     Dosage: 40 MG, QD
     Dates: start: 20071105
  20. RESTORIL [Concomitant]
     Indication: INSOMNIA
     Dosage: 15 MG HS
     Dates: start: 20071105

REACTIONS (9)
  - PATHOGEN RESISTANCE [None]
  - KLEBSIELLA INFECTION [None]
  - PYREXIA [None]
  - RENAL IMPAIRMENT [None]
  - BIOPSY [None]
  - DIARRHOEA [None]
  - HYPERHIDROSIS [None]
  - BLOOD CREATININE INCREASED [None]
  - GLOMERULONEPHRITIS MEMBRANOPROLIFERATIVE [None]
